FAERS Safety Report 10559384 (Version 2)
Quarter: 2014Q4

REPORT INFORMATION
  Report Type: Spontaneous
  Country: CN (occurrence: CN)
  Receive Date: 20141103
  Receipt Date: 20141115
  Transmission Date: 20150529
  Serious: Yes (Other)
  Sender: FDA-Public Use
  Company Number: CN-JNJFOC-20141019026

PATIENT
  Age: 8 Year
  Sex: Male
  Weight: 30 kg

DRUGS (3)
  1. CHILDRENS MOTRIN [Suspect]
     Active Substance: IBUPROFEN
     Indication: PYREXIA
     Route: 048
     Dates: start: 20140422, end: 20140422
  2. GLUCOSE INJECTION [Concomitant]
     Indication: ELECTROLYTE IMBALANCE
     Route: 042
     Dates: start: 20140421, end: 20140421
  3. POTASSIUM SODIUM DEHYDROANDROAN DROGRAPHOLIDE SUCCINATE [Suspect]
     Active Substance: POTASSIUM SODIUM DEHYDROANDROGRAPHOLIDE SUCCINATE
     Indication: ACUTE TONSILLITIS
     Route: 042
     Dates: start: 20140421, end: 20140421

REACTIONS (3)
  - Pruritus [Recovering/Resolving]
  - Rash erythematous [None]
  - Rash [Recovering/Resolving]

NARRATIVE: CASE EVENT DATE: 20140422
